FAERS Safety Report 4340019-2 (Version None)
Quarter: 2004Q2

REPORT INFORMATION
  Report Type: 
  Country: None (occurrence: None)
  Receive Date: 20040416
  Receipt Date: 20040107
  Transmission Date: 20050107
  Serious: Yes (Other)
  Sender: FDA-Public Use
  Company Number: GB-BRISTOL-MYERS SQUIBB COMPANY-12475513

PATIENT
  Sex: Male

DRUGS (4)
  1. HYDREA [Suspect]
     Dosage: DURATION: ^FOR A CONSIDERABLE TIME.^
     Route: 048
  2. FOLIC ACID [Concomitant]
  3. MORPHINE [Concomitant]
     Route: 058
  4. PENICILLIN [Concomitant]

REACTIONS (3)
  - ABORTION SPONTANEOUS [None]
  - PREGNANCY OF PARTNER [None]
  - TRANSMISSION OF DRUG VIA SEMEN [None]
